FAERS Safety Report 4600124-X (Version None)
Quarter: 2005Q1

REPORT INFORMATION
  Report Type: 
  Country: None (occurrence: None)
  Receive Date: 20050307
  Receipt Date: 20041222
  Transmission Date: 20050727
  Serious: Yes (Hospitalization)
  Sender: FDA-Public Use
  Company Number: PHBS2004JP17293

PATIENT
  Age: 67 Year
  Sex: Male

DRUGS (6)
  1. ISEPACIN [Suspect]
     Indication: FRACTURE
     Dates: start: 20040520, end: 20040525
  2. FLUMARIN [Suspect]
     Indication: FRACTURE
     Dates: start: 20040607, end: 20040610
  3. NORVASC [Concomitant]
     Indication: HYPERTENSION
     Dosage: 5 MG, UNK
     Route: 048
     Dates: start: 20020819
  4. DIOVAN [Suspect]
     Indication: HYPERTENSION
     Dosage: 80 MG/DAY
     Route: 048
     Dates: start: 20020925, end: 20040613
  5. DIOVAN [Suspect]
     Dosage: 80 MG/DAY
     Route: 048
     Dates: start: 20040729, end: 20040826
  6. PANSPORIN [Suspect]
     Indication: FRACTURE
     Route: 042
     Dates: start: 20040519, end: 20040616

REACTIONS (13)
  - DRUG EFFECT DECREASED [None]
  - EOSINOPHIL COUNT INCREASED [None]
  - HAEMATOCRIT DECREASED [None]
  - HAEMOGLOBIN DECREASED [None]
  - INJURY [None]
  - LEUKOPENIA [None]
  - LOWER LIMB FRACTURE [None]
  - MONOCYTE COUNT INCREASED [None]
  - NEUTROPENIA [None]
  - NEUTROPHIL COUNT DECREASED [None]
  - OPEN FRACTURE [None]
  - RETINAL HAEMORRHAGE [None]
  - WHITE BLOOD CELL COUNT DECREASED [None]
